FAERS Safety Report 14602475 (Version 3)
Quarter: 2018Q1

REPORT INFORMATION
  Report Type: Spontaneous
  Country: US (occurrence: US)
  Receive Date: 20180306
  Receipt Date: 20180322
  Transmission Date: 20180509
  Serious: No
  Sender: FDA-Public Use
  Company Number: US-PFIZER INC-2018086790

PATIENT
  Age: 48 Year
  Sex: Female
  Weight: 58.5 kg

DRUGS (5)
  1. LYRICA [Suspect]
     Active Substance: PREGABALIN
     Indication: PAIN
     Dosage: 150 MG, UNK (TAKING 3 A DAY, 2 IN THE EVENING AND 1 IN THE MORNING)
     Route: 048
  2. CYMBALTA [Concomitant]
     Active Substance: DULOXETINE HYDROCHLORIDE
     Indication: FIBROMYALGIA
     Dosage: 30 MG, UNK
  3. FLONASE [Concomitant]
     Active Substance: FLUTICASONE PROPIONATE
     Indication: PARANASAL SINUS DISCOMFORT
     Dosage: 2 SPRAYS EACH NOSTRILS ONCE A DAY
     Route: 045
     Dates: end: 20180219
  4. MIRENA [Concomitant]
     Active Substance: LEVONORGESTREL
     Dosage: UNK
  5. LYRICA [Suspect]
     Active Substance: PREGABALIN
     Indication: FIBROMYALGIA
     Dosage: 200 MG, UNK (4 TIMES A DAY, 2 IN THE EVENING, 1 IN THE MORNING AND 1 IN THE AFTERNOON)
     Route: 048

REACTIONS (5)
  - Nausea [Recovered/Resolved]
  - Headache [Recovered/Resolved]
  - Withdrawal syndrome [Recovered/Resolved]
  - Pain [Not Recovered/Not Resolved]
  - Intentional product use issue [Unknown]
